FAERS Safety Report 12293632 (Version 3)
Quarter: 2016Q4

REPORT INFORMATION
  Report Type: Spontaneous
  Country: US (occurrence: US)
  Receive Date: 20160421
  Receipt Date: 20161208
  Transmission Date: 20170207
  Serious: No
  Sender: FDA-Public Use
  Company Number: US-PFIZER INC-2016219346

PATIENT
  Age: 50 Year
  Sex: Female

DRUGS (4)
  1. CELEBREX [Suspect]
     Active Substance: CELECOXIB
     Indication: RHEUMATOID ARTHRITIS
     Dosage: 200 MG, 2X/DAY
     Route: 048
     Dates: start: 201511
  2. VALIUM [Concomitant]
     Active Substance: DIAZEPAM
     Indication: ABDOMINAL DISCOMFORT
     Dosage: 10 MG, UNK
     Route: 048
  3. HYDROCODONE [Concomitant]
     Active Substance: HYDROCODONE
     Indication: PAIN
     Dosage: 10/325, FOUR TIMES A DAY
  4. VALIUM [Concomitant]
     Active Substance: DIAZEPAM
     Indication: FLATULENCE

REACTIONS (6)
  - Weight decreased [Unknown]
  - Fall [Unknown]
  - Malaise [Unknown]
  - Hypoaesthesia [Unknown]
  - Gait disturbance [Unknown]
  - Paraesthesia [Unknown]
